FAERS Safety Report 18385256 (Version 2)
Quarter: 2020Q4

REPORT INFORMATION
  Report Type: Spontaneous
  Country: BR (occurrence: BR)
  Receive Date: 20201015
  Receipt Date: 20201026
  Transmission Date: 20210114
  Serious: Yes (Other)
  Sender: FDA-Public Use
  Company Number: BR-TORRENT-00005463

PATIENT
  Age: 70 Year
  Sex: Female
  Weight: 68 kg

DRUGS (2)
  1. ALPRAZOLAM. [Concomitant]
     Active Substance: ALPRAZOLAM
     Indication: INSOMNIA
     Dosage: ONE TABLET DAILY
     Route: 048
  2. SERTRALINE [Suspect]
     Active Substance: SERTRALINE HYDROCHLORIDE
     Indication: DEPRESSION
     Dosage: 2 TABLETS DAILY
     Route: 048
     Dates: start: 202009

REACTIONS (4)
  - Hallucination [Not Recovered/Not Resolved]
  - Delusion [Not Recovered/Not Resolved]
  - Headache [Not Recovered/Not Resolved]
  - Hallucination, auditory [Not Recovered/Not Resolved]

NARRATIVE: CASE EVENT DATE: 2020
